FAERS Safety Report 9829796 (Version 2)
Quarter: 2014Q1

REPORT INFORMATION
  Report Type: Spontaneous
  Country: US (occurrence: US)
  Receive Date: 20140120
  Receipt Date: 20140303
  Transmission Date: 20141002
  Serious: Yes (Other)
  Sender: FDA-Public Use
  Company Number: US-SUN PHARMACEUTICAL INDUSTRIES LTD-2014SUN00049

PATIENT
  Sex: 0

DRUGS (3)
  1. LETROZOLE TABS 2.5MG [Suspect]
     Indication: BREAST CANCER
     Dosage: 2.5 MG, OD
     Route: 048
  2. WARFARIN [Concomitant]
  3. ATORVASTATIN [Concomitant]

REACTIONS (4)
  - Teratoma [Unknown]
  - Ovarian cyst [Unknown]
  - Abdominal pain lower [Unknown]
  - Vaginal haemorrhage [Unknown]
